FAERS Safety Report 9999280 (Version 1)
Quarter: 2014Q1

REPORT INFORMATION
  Report Type: Spontaneous
  Country: US (occurrence: None)
  Receive Date: 20140311
  Receipt Date: 20140311
  Transmission Date: 20141002
  Serious: Yes (Other)
  Sender: FDA-Public Use
  Company Number: None

PATIENT
  Age: 62 Year
  Sex: Female
  Weight: 90.72 kg

DRUGS (1)
  1. VENLAFAXINE [Suspect]
     Dosage: 1/DAY  ONCE DAILY  TAKEN BY MOUTH
     Route: 048

REACTIONS (4)
  - Middle insomnia [None]
  - Palpitations [None]
  - Dizziness [None]
  - Product quality issue [None]
